FAERS Safety Report 15249840 (Version 3)
Quarter: 2018Q4

REPORT INFORMATION
  Report Type: Report from Study
  Country: None (occurrence: US)
  Receive Date: 20180807
  Receipt Date: 20181026
  Transmission Date: 20190204
  Serious: Yes (Death, Hospitalization)
  Sender: FDA-Public Use
  Company Number: US-ABBVIE-18K-163-2443862-00

PATIENT
  Age: 67 Year
  Sex: Male
  Weight: 77.18 kg

DRUGS (6)
  1. VENCLEXTA [Suspect]
     Active Substance: VENETOCLAX
     Indication: ACUTE MYELOID LEUKAEMIA
     Route: 048
     Dates: start: 20180327, end: 2018
  2. BENADRYL [Concomitant]
     Active Substance: DIPHENHYDRAMINE HYDROCHLORIDE
     Indication: TRANSFUSION
  3. ACYCLOVIR. [Concomitant]
     Active Substance: ACYCLOVIR
     Indication: PRODUCT USED FOR UNKNOWN INDICATION
  4. BACTRIM [Concomitant]
     Active Substance: SULFAMETHOXAZOLE\TRIMETHOPRIM
     Indication: PRODUCT USED FOR UNKNOWN INDICATION
  5. VENCLEXTA [Suspect]
     Active Substance: VENETOCLAX
     Route: 048
     Dates: start: 2018
  6. NOXAFIL [Concomitant]
     Active Substance: POSACONAZOLE
     Indication: FUNGAL INFECTION

REACTIONS (6)
  - Blood count abnormal [Unknown]
  - Malignant neoplasm progression [Fatal]
  - Pleural effusion [Unknown]
  - Pericardial effusion [Not Recovered/Not Resolved]
  - Off label use [Not Recovered/Not Resolved]
  - Fungal infection [Not Recovered/Not Resolved]

NARRATIVE: CASE EVENT DATE: 2018
